FAERS Safety Report 18266984 (Version 4)
Quarter: 2022Q3

REPORT INFORMATION
  Report Type: Spontaneous
  Country: CA (occurrence: CA)
  Receive Date: 20200915
  Receipt Date: 20220808
  Transmission Date: 20221026
  Serious: Yes (Hospitalization, Other)
  Sender: FDA-Public Use
  Company Number: None

PATIENT
  Age: 48 Year
  Sex: Female
  Weight: 106 kg

DRUGS (36)
  1. PACLITAXEL [Suspect]
     Active Substance: PACLITAXEL
     Indication: Breast cancer
     Dosage: LIQUID INTRAVENOUS, ALSO RECEIVED 303.0 MG, 393.0 MG, 1 EVERY 1 DAYS
     Route: 042
  2. DOXORUBICIN HYDROCHLORIDE [Suspect]
     Active Substance: DOXORUBICIN HYDROCHLORIDE
     Indication: Breast cancer
     Dosage: SOLUTION INTRAVENOUS, 1 EVERY 2 WEEKS
     Route: 042
  3. ONDANSETRON [Suspect]
     Active Substance: ONDANSETRON
     Indication: Supportive care
     Dosage: 1 EVERY 1 DAYS
     Route: 048
  4. BETAMETHASONE [Suspect]
     Active Substance: BETAMETHASONE
     Indication: Tardive dyskinesia
     Dosage: 2 EVERY 1 DAYS
     Route: 048
  5. DEXAMETHASONE [Suspect]
     Active Substance: DEXAMETHASONE
     Indication: Supportive care
     Dosage: 1 EVERY 1 DAYS
     Route: 048
  6. EMEND [Suspect]
     Active Substance: APREPITANT
     Indication: Supportive care
     Dosage: 1 EVERY 1 DAYS, ALSO RECEIVED 125.0 MG
     Route: 048
  7. ENOXAPARIN [Suspect]
     Active Substance: ENOXAPARIN
     Indication: Tardive dyskinesia
     Dosage: 1 EVERY 1 DAYS
     Route: 058
  8. FILGRASTIM [Suspect]
     Active Substance: FILGRASTIM
     Indication: Supportive care
     Dosage: 1 EVERY 1 DAYS
     Route: 048
  9. LEVOFLOXACIN [Suspect]
     Active Substance: LEVOFLOXACIN
     Indication: Tardive dyskinesia
     Dosage: 1 EVERY 1 DAYS
     Route: 048
  10. LORAZEPAM [Suspect]
     Active Substance: LORAZEPAM
     Indication: Tardive dyskinesia
     Dosage: 2 EVERY 1 DAYS
     Route: 048
  11. METOCLOPRAMIDE [Suspect]
     Active Substance: METOCLOPRAMIDE
     Indication: Tardive dyskinesia
     Dosage: 4 EVERY 1 DAYS
     Route: 048
  12. PEGFILGRASTIM [Suspect]
     Active Substance: PEGFILGRASTIM
     Indication: Supportive care
     Route: 058
  13. CYCLOPHOSPHAMIDE [Suspect]
     Active Substance: CYCLOPHOSPHAMIDE
     Indication: Breast cancer
     Dosage: 1 EVERY 2 WEEKS
     Route: 042
  14. RANITIDINE [Suspect]
     Active Substance: RANITIDINE
     Indication: Tardive dyskinesia
     Dosage: 1 EVERY 2 WEEKS
     Route: 048
  15. TRASTUZUMAB [Suspect]
     Active Substance: TRASTUZUMAB
     Indication: Tardive dyskinesia
     Dosage: ALSO RECEIVED 866.0 MG, 1 EVERY 1 DAYS
     Route: 048
  16. TYLENOL WITH CODEINE [Suspect]
     Active Substance: ACETAMINOPHEN\CODEINE PHOSPHATE
     Indication: Tardive dyskinesia
     Route: 065
  17. ACETAMINOPHEN AND CODEINE [Suspect]
     Active Substance: ACETAMINOPHEN\CODEINE PHOSPHATE
     Indication: Tardive dyskinesia
     Dosage: 1 EVERY 4 HOURS
     Route: 065
  18. APREPITANT [Suspect]
     Active Substance: APREPITANT
     Indication: Supportive care
     Dosage: 1 EVERY 1 DAYS
     Route: 048
  19. NEULASTA [Suspect]
     Active Substance: PEGFILGRASTIM
     Indication: Supportive care
     Dosage: SOLUTION SUBCUTANEOUS
     Route: 058
  20. NEUPOGEN [Suspect]
     Active Substance: FILGRASTIM
     Indication: Supportive care
     Dosage: SOLUTION INTRAVENOUS, 1 EVERY 1 DAYS
     Route: 048
  21. ZOFRAN [Suspect]
     Active Substance: ONDANSETRON HYDROCHLORIDE
     Indication: Supportive care
     Dosage: 8 MILLIGRAM
  22. METOCLOPRAMIDE [Suspect]
     Active Substance: METOCLOPRAMIDE
     Indication: Tardive dyskinesia
     Dosage: 1 EVERY 6 HOURS
     Route: 048
  23. APREPITANT [Suspect]
     Active Substance: APREPITANT
     Indication: Supportive care
     Dosage: 1 EVERY 1 DAYS
     Route: 048
  24. FILGRASTIM [Suspect]
     Active Substance: FILGRASTIM
     Indication: Supportive care
     Dosage: 1 EVERY 1 DAYS
     Route: 048
  25. FILGRASTIM [Suspect]
     Active Substance: FILGRASTIM
     Indication: Supportive care
     Dosage: 1 EVERY 1 DAYS
     Route: 048
  26. PACLITAXEL [Suspect]
     Active Substance: PACLITAXEL
     Indication: Breast cancer
     Dosage: LIQUID INTRAVENOUS, ALSO RECEIVED 303.0 MG, 393.0 MG
     Route: 042
  27. PACLITAXEL [Suspect]
     Active Substance: PACLITAXEL
     Indication: Breast cancer
     Dosage: LIQUID INTRAVENOUS, ALSO RECEIVED 303.0 MG, 393.0 MG
     Route: 042
  28. PACLITAXEL [Suspect]
     Active Substance: PACLITAXEL
     Indication: Breast cancer
     Dosage: LIQUID INTRAVENOUS, ALSO RECEIVED 303.0 MG, 393.0 MG
     Route: 042
  29. ACETAMINOPHEN AND CODEINE [Suspect]
     Active Substance: ACETAMINOPHEN\CODEINE PHOSPHATE
     Indication: Tardive dyskinesia
     Dosage: 1 EVERY 1 DAYS
     Route: 065
  30. EMEND [Suspect]
     Active Substance: APREPITANT
     Indication: Supportive care
     Route: 048
  31. LORAZEPAM [Suspect]
     Active Substance: LORAZEPAM
     Indication: Tardive dyskinesia
     Dosage: 1 EVERY 1 DAYS
     Route: 048
  32. NEUPOGEN [Suspect]
     Active Substance: FILGRASTIM
     Indication: Supportive care
     Dosage: 1 EVERY 1 DAYS
     Route: 048
  33. LORAZEPAM [Suspect]
     Active Substance: LORAZEPAM
     Indication: Tardive dyskinesia
     Dosage: EVERY 12 HOURS
     Route: 048
  34. RANITIDINE [Suspect]
     Active Substance: RANITIDINE
     Indication: Tardive dyskinesia
     Dosage: 2 EVERY 1 DAYS, EVERY 12 HOURS
     Route: 048
  35. CYCLOPHOSPHAMIDE [Suspect]
     Active Substance: CYCLOPHOSPHAMIDE
     Indication: Breast cancer
     Dosage: 1 EVERY 2 WEEKS
     Route: 042
  36. LEVOFLOXACIN [Suspect]
     Active Substance: LEVOFLOXACIN
     Indication: Tardive dyskinesia
     Dosage: 1 EVERY 1 DAYS
     Route: 048

REACTIONS (11)
  - Atelectasis [Recovered/Resolved]
  - Dyspnoea [Recovered/Resolved]
  - Fatigue [Recovered/Resolved]
  - Gastrointestinal disorder [Recovered/Resolved]
  - Hypoxia [Recovered/Resolved]
  - Nausea [Recovered/Resolved]
  - Pyrexia [Recovered/Resolved]
  - Rash [Recovered/Resolved]
  - Computerised tomogram thorax abnormal [Recovered/Resolved]
  - Cough [Recovered/Resolved]
  - Computerised tomogram thorax [Recovered/Resolved]
